FAERS Safety Report 4532129-1 (Version None)
Quarter: 2004Q4

REPORT INFORMATION
  Report Type: 
  Country: None (occurrence: None)
  Receive Date: 20041217
  Receipt Date: 20041208
  Transmission Date: 20050328
  Serious: Yes (Life-Threatening, Hospitalization, Other)
  Sender: FDA-Public Use
  Company Number: 2004-12-0253

PATIENT
  Age: 55 Year
  Sex: Female

DRUGS (11)
  1. CLARITIN [Suspect]
     Indication: ATOPY
     Dosage: 1 TABLET QD ORAL
     Route: 048
     Dates: end: 20041101
  2. LEVOTHYROX TABLETS [Suspect]
     Indication: HYPOTHYROIDISM
     Dosage: 75 UG QD ORAL
     Route: 048
     Dates: end: 20041101
  3. LYSANXIA TABLETS [Suspect]
     Indication: DRUG USE FOR UNKNOWN INDICATION
     Dosage: 10 MG TID ORAL
     Route: 048
     Dates: end: 20041101
  4. EFFEXOR [Suspect]
     Indication: DRUG USE FOR UNKNOWN INDICATION
     Dosage: 37 MG TID ORAL
     Route: 048
     Dates: start: 20041001
  5. XANAX [Concomitant]
  6. IXEL (MILNACIPRAN) [Concomitant]
  7. TEGRETOL [Concomitant]
  8. TENORMIN [Concomitant]
  9. VASTEN (PRAVASTATIN) [Concomitant]
  10. RAMIPRIL [Concomitant]
  11. KARDEGIC SACHETS (ACETYLSALICYLATE LYSINE) [Concomitant]

REACTIONS (19)
  - AREFLEXIA [None]
  - BLOOD POTASSIUM DECREASED [None]
  - BODY TEMPERATURE DECREASED [None]
  - CIRCULATORY COLLAPSE [None]
  - DRUG SCREEN POSITIVE [None]
  - ELECTROCARDIOGRAM QT CORRECTED INTERVAL PROLONGED [None]
  - ELECTROCARDIOGRAM QT PROLONGED [None]
  - ELECTROENCEPHALOGRAM ABNORMAL [None]
  - HYPOKALAEMIA [None]
  - INCOHERENT [None]
  - JUGULAR VEIN DISTENSION [None]
  - LOSS OF CONSCIOUSNESS [None]
  - MULTIPLE DRUG OVERDOSE INTENTIONAL [None]
  - MYDRIASIS [None]
  - PUPIL FIXED [None]
  - RESPIRATORY ARREST [None]
  - SELF-MEDICATION [None]
  - VASOSPASM [None]
  - VENTRICULAR TACHYCARDIA [None]
